FAERS Safety Report 8506469-5 (Version None)
Quarter: 2012Q3

REPORT INFORMATION
  Report Type: 
  Country: None (occurrence: None)
  Receive Date: 20120706
  Receipt Date: 20120706
  Transmission Date: 20120928
  Serious: Yes (Other)
  Sender: FDA-Public Use
  Company Number: None

PATIENT
  Sex: Male

DRUGS (8)
  1. FLUTICASONE PROPIONATE [Concomitant]
  2. ENBREL [Suspect]
     Indication: RHEUMATOID ARTHRITIS
     Dosage: 50MG QW SQ
     Route: 058
     Dates: start: 20120629, end: 20120703
  3. CALRITLN [Concomitant]
  4. FOLIC ACID [Concomitant]
  5. HYDROXYUREA [Concomitant]
  6. PREDNISONE [Concomitant]
  7. XOPENEX [Concomitant]
  8. CARDIZEM [Concomitant]

REACTIONS (3)
  - JOINT SWELLING [None]
  - PALPITATIONS [None]
  - OEDEMA PERIPHERAL [None]
